FAERS Safety Report 19718205 (Version 1)
Quarter: 2021Q3

REPORT INFORMATION
  Report Type: Spontaneous
  Country: JP (occurrence: JP)
  Receive Date: 20210819
  Receipt Date: 20210819
  Transmission Date: 20211014
  Serious: Yes (Other)
  Sender: FDA-Public Use
  Company Number: JP-PFIZER INC-202101031835

PATIENT
  Age: 40 Year
  Sex: Female

DRUGS (1)
  1. RHEUMATREX [Suspect]
     Active Substance: METHOTREXATE SODIUM

REACTIONS (3)
  - Hand deformity [Recovering/Resolving]
  - Finger deformity [Recovering/Resolving]
  - Tendon dislocation [Recovering/Resolving]
